FAERS Safety Report 19782834 (Version 7)
Quarter: 2023Q2

REPORT INFORMATION
  Report Type: Spontaneous
  Country: US (occurrence: US)
  Receive Date: 20210902
  Receipt Date: 20230526
  Transmission Date: 20230722
  Serious: Yes (Other)
  Sender: FDA-Public Use
  Company Number: US-PFIZER INC-202101097656

PATIENT
  Age: 42 Year
  Sex: Female

DRUGS (8)
  1. IBRANCE [Suspect]
     Active Substance: PALBOCICLIB
     Dosage: 125 MG
     Dates: start: 20210712, end: 20210926
  2. IBRANCE [Suspect]
     Active Substance: PALBOCICLIB
     Dosage: 125 MG
     Dates: start: 20210726
  3. IBRANCE [Suspect]
     Active Substance: PALBOCICLIB
     Dosage: 125 MG
     Dates: start: 20210803
  4. IBRANCE [Suspect]
     Active Substance: PALBOCICLIB
     Dosage: 125 MG
     Dates: start: 20210712
  5. IBRANCE [Suspect]
     Active Substance: PALBOCICLIB
     Dosage: 125 MG
     Dates: start: 20210713, end: 20211102
  6. IBRANCE [Suspect]
     Active Substance: PALBOCICLIB
     Dosage: X21 DAYS ON 7 DAYS OFF
     Dates: start: 2021
  7. IBRANCE [Suspect]
     Active Substance: PALBOCICLIB
     Dosage: 100 MG
     Dates: start: 20220209
  8. METHADONE [Concomitant]
     Active Substance: METHADONE HYDROCHLORIDE

REACTIONS (17)
  - Neutropenia [Unknown]
  - Circumstance or information capable of leading to medication error [Unknown]
  - White blood cell count decreased [Not Recovered/Not Resolved]
  - Arthralgia [Recovering/Resolving]
  - Decreased appetite [Not Recovered/Not Resolved]
  - Diarrhoea [Unknown]
  - Vomiting [Unknown]
  - Hair texture abnormal [Unknown]
  - Pyrexia [Unknown]
  - Nasal dryness [Unknown]
  - Aphonia [Unknown]
  - Nasal congestion [Unknown]
  - Mucosal inflammation [Unknown]
  - COVID-19 [Unknown]
  - Fatigue [Unknown]
  - Nausea [Unknown]
  - Weight decreased [Unknown]

NARRATIVE: CASE EVENT DATE: 20210101
